FAERS Safety Report 18991755 (Version 11)
Quarter: 2021Q4

REPORT INFORMATION
  Report Type: Report from Study
  Country: CO (occurrence: CO)
  Receive Date: 20210310
  Receipt Date: 20211222
  Transmission Date: 20220303
  Serious: Yes (Hospitalization, Other)
  Sender: FDA-Public Use
  Company Number: CO-TAKEDA-2021TUS011645

PATIENT
  Age: 25 Year
  Sex: Female
  Weight: 49 kg

DRUGS (3)
  1. VEDOLIZUMAB [Suspect]
     Active Substance: VEDOLIZUMAB
     Indication: Crohn^s disease
     Dosage: 300 MILLIGRAM
     Route: 042
     Dates: start: 20210216
  2. VEDOLIZUMAB [Suspect]
     Active Substance: VEDOLIZUMAB
     Dosage: 300 MILLIGRAM
     Route: 042
     Dates: start: 20210308
  3. VEDOLIZUMAB [Suspect]
     Active Substance: VEDOLIZUMAB
     Dosage: 300 MILLIGRAM, Q4WEEKS
     Route: 042

REACTIONS (35)
  - COVID-19 [Recovered/Resolved]
  - Intestinal obstruction [Recovering/Resolving]
  - Abdominal pain [Recovering/Resolving]
  - Vomiting [Recovering/Resolving]
  - Diarrhoea [Recovering/Resolving]
  - Nausea [Recovering/Resolving]
  - Blood pressure decreased [Not Recovered/Not Resolved]
  - Drug hypersensitivity [Recovered/Resolved]
  - Abdominal pain upper [Recovering/Resolving]
  - Nasal mucosal ulcer [Recovering/Resolving]
  - Throat irritation [Recovering/Resolving]
  - Urticaria [Recovering/Resolving]
  - Inflammation [Recovering/Resolving]
  - Arthralgia [Recovering/Resolving]
  - Headache [Recovering/Resolving]
  - Administration site rash [Recovering/Resolving]
  - Dizziness [Recovering/Resolving]
  - Mouth ulceration [Recovering/Resolving]
  - Pain [Recovering/Resolving]
  - Face oedema [Recovering/Resolving]
  - Vasculitis [Recovering/Resolving]
  - Weight decreased [Recovering/Resolving]
  - Faeces discoloured [Recovering/Resolving]
  - Asthenia [Recovering/Resolving]
  - Weight increased [Unknown]
  - Arthropathy [Unknown]
  - Malaise [Recovering/Resolving]
  - Decreased appetite [Recovering/Resolving]
  - Rash [Recovering/Resolving]
  - Pyrexia [Not Recovered/Not Resolved]
  - Anal inflammation [Not Recovered/Not Resolved]
  - Haemorrhoids [Not Recovered/Not Resolved]
  - Constipation [Not Recovered/Not Resolved]
  - Drug ineffective [Unknown]
  - Off label use [Unknown]

NARRATIVE: CASE EVENT DATE: 20210216
